FAERS Safety Report 9987997 (Version 1)
Quarter: 2014Q1

REPORT INFORMATION
  Report Type: Spontaneous
  Country: US (occurrence: US)
  Receive Date: 20140307
  Receipt Date: 20140307
  Transmission Date: 20141002
  Serious: Yes (Other)
  Sender: FDA-Public Use
  Company Number: US-ABBVIE-14P-163-1206895-00

PATIENT
  Sex: 0

DRUGS (1)
  1. HUMIRA [Suspect]
     Indication: REITER^S SYNDROME
     Dates: start: 201206, end: 20130416

REACTIONS (2)
  - Gestational hypertension [Recovered/Resolved]
  - Reiter^s syndrome [Not Recovered/Not Resolved]
